FAERS Safety Report 6377893-4 (Version None)
Quarter: 2009Q3

REPORT INFORMATION
  Report Type: 
  Country: None (occurrence: None)
  Receive Date: 20090925
  Receipt Date: 20090914
  Transmission Date: 20100115
  Serious: Yes (Hospitalization, Other)
  Sender: FDA-Public Use
  Company Number: PHEH2009US11170

PATIENT
  Sex: Male
  Weight: 58.05 kg

DRUGS (15)
  1. EXJADE [Suspect]
     Indication: THALASSAEMIA SICKLE CELL
     Dosage: 1000 MG DAILY
     Route: 048
     Dates: start: 20090623
  2. EXJADE [Suspect]
     Indication: IRON OVERLOAD
  3. DICLOFENAC [Concomitant]
     Dosage: 75 MG, BID
     Route: 048
  4. GABAPENTIN [Concomitant]
     Dosage: 300 MG 2 TABLETS IN THE MORNING
     Route: 048
  5. GABAPENTIN [Concomitant]
     Dosage: 300 MG, BID
     Route: 048
  6. TRAMADOL HCL [Concomitant]
     Dosage: 50 MG
     Route: 048
  7. TRAMADOL HCL [Concomitant]
     Dosage: 50 MG, TID
  8. PLAVIX [Concomitant]
     Dosage: 75 MG, QD
     Route: 048
  9. LACTULOSE [Concomitant]
     Dosage: 30 ML, BID PRN
     Route: 048
  10. CALCIUM [Concomitant]
     Dosage: 1 TAB BID
     Route: 048
  11. PREDNISONE TAB [Concomitant]
     Dosage: 2 TABS BY MOUTH EACH MORNING
     Route: 048
  12. METOPROLOL [Concomitant]
     Dosage: 50 MG, BID
     Route: 048
  13. ASPIRIN [Concomitant]
     Dosage: 81 MG, QD
     Route: 048
  14. FLOMAX [Concomitant]
     Dosage: 0.4
  15. OMEPRAZOLE [Concomitant]
     Dosage: 20 MG, QD
     Route: 048

REACTIONS (5)
  - ALBUMIN GLOBULIN RATIO DECREASED [None]
  - HYPERTENSIVE CARDIOMYOPATHY [None]
  - NODULE ON EXTREMITY [None]
  - PALPITATIONS [None]
  - VASCULITIS [None]
